FAERS Safety Report 12156436 (Version 3)
Quarter: 2016Q1

REPORT INFORMATION
  Report Type: Spontaneous
  Country: JP (occurrence: JP)
  Receive Date: 20160307
  Receipt Date: 20160325
  Transmission Date: 20160526
  Serious: Yes (Life-Threatening, Hospitalization, Disabling)
  Sender: FDA-Public Use
  Company Number: JP-PFIZER INC-2016137347

PATIENT
  Age: 40 Year
  Sex: Female
  Weight: 51 kg

DRUGS (6)
  1. CABASER [Suspect]
     Active Substance: CABERGOLINE
     Indication: INFERTILITY
     Dosage: 1 DF, 1X/DAY
     Route: 048
     Dates: start: 201502
  2. CEFNIL [Suspect]
     Active Substance: CEFDINIR
     Indication: ANTIBIOTIC PROPHYLAXIS
     Dosage: 100 MG, 3X/DAY
     Route: 048
     Dates: start: 201510
  3. TOKISHAKUYAKUSAN [Suspect]
     Active Substance: HERBALS
     Indication: INFERTILITY
     Dosage: 2 G, 3X/DAY
     Route: 048
     Dates: start: 201507
  4. CLOMID [Suspect]
     Active Substance: CLOMIPHENE CITRATE
     Indication: INFERTILITY
     Dosage: 50 MG, 1X/DAY
     Route: 048
     Dates: start: 201601
  5. PROVERA [Suspect]
     Active Substance: MEDROXYPROGESTERONE ACETATE
     Indication: INFERTILITY
     Dosage: 1 DF, 1X/DAY
     Route: 048
     Dates: start: 201502
  6. HCG [Suspect]
     Active Substance: GONADOTROPHIN, CHORIONIC
     Indication: INFERTILITY
     Dosage: 5000 IU, DAILY
     Route: 030
     Dates: start: 201601

REACTIONS (1)
  - Stevens-Johnson syndrome [Not Recovered/Not Resolved]

NARRATIVE: CASE EVENT DATE: 20160227
